FAERS Safety Report 10679228 (Version 1)
Quarter: 2014Q4

REPORT INFORMATION
  Report Type: Spontaneous
  Country: AU (occurrence: AU)
  Receive Date: 20141229
  Receipt Date: 20141229
  Transmission Date: 20150529
  Serious: Yes (Other)
  Sender: FDA-Public Use
  Company Number: AU-ASTRAZENECA-2014SE97958

PATIENT
  Age: 39 Year
  Sex: Male

DRUGS (2)
  1. QUETIAPINE [Suspect]
     Active Substance: QUETIAPINE
     Indication: TOURETTE^S DISORDER
     Route: 048
  2. QUETIAPINE [Suspect]
     Active Substance: QUETIAPINE
     Indication: TOURETTE^S DISORDER
     Route: 048

REACTIONS (3)
  - Dermatomyositis [Unknown]
  - Rhabdomyolysis [Unknown]
  - Off label use [Unknown]
